FAERS Safety Report 4552450-0 (Version None)
Quarter: 2005Q1

REPORT INFORMATION
  Report Type: 
  Country: None (occurrence: None)
  Receive Date: 20050112
  Receipt Date: 20050112
  Transmission Date: 20050727
  Serious: No
  Sender: FDA-Public Use
  Company Number: None

PATIENT
  Age: 73 Year
  Sex: Female

DRUGS (5)
  1. DELATESTRYL [Suspect]
     Indication: HORMONE REPLACEMENT THERAPY
     Dosage: INJECT 1 CC INTRAMUSCULARLY EVERY 2 WEEKS
     Route: 030
  2. LISINOPRIL [Concomitant]
  3. WARFARIN SODIUM [Concomitant]
  4. INDERAL [Concomitant]
  5. ZOCOR [Concomitant]

REACTIONS (2)
  - DRUG INEFFECTIVE [None]
  - PHARMACEUTICAL PRODUCT COMPLAINT [None]
